FAERS Safety Report 5738259-0 (Version None)
Quarter: 2008Q2

REPORT INFORMATION
  Report Type: 
  Country: None (occurrence: None)
  Receive Date: 20080514
  Receipt Date: 20080506
  Transmission Date: 20081010
  Serious: Yes (Other)
  Sender: FDA-Public Use
  Company Number: GB-PFIZER INC-2008039544

PATIENT
  Age: 20 Year
  Sex: Female

DRUGS (1)
  1. GENOTROPIN [Suspect]

REACTIONS (4)
  - DRUG WITHDRAWAL SYNDROME [None]
  - EATING DISORDER [None]
  - MENTAL IMPAIRMENT [None]
  - MUTISM [None]
